FAERS Safety Report 8281388-0 (Version None)
Quarter: 2012Q2

REPORT INFORMATION
  Report Type: 
  Country: None (occurrence: None)
  Receive Date: 20120410
  Receipt Date: 20120410
  Transmission Date: 20120825
  Serious: No
  Sender: FDA-Public Use
  Company Number: None

PATIENT
  Sex: Female
  Weight: 61.6892 kg

DRUGS (1)
  1. DONEPEZIL HYDROCHLORIDE [Suspect]
     Indication: DEMENTIA ALZHEIMER'S TYPE
     Dosage: 5MG EVERY NIGHT THAN CHANGE TO MORNING
     Dates: start: 20120306, end: 20120315

REACTIONS (2)
  - INSOMNIA [None]
  - ABNORMAL DREAMS [None]
